FAERS Safety Report 6462493-8 (Version None)
Quarter: 2009Q4

REPORT INFORMATION
  Report Type: 
  Country: None (occurrence: None)
  Receive Date: 20091130
  Receipt Date: 20091123
  Transmission Date: 20100525
  Serious: Yes (Death, Hospitalization, Other)
  Sender: FDA-Public Use
  Company Number: US-ELI_LILLY_AND_COMPANY-US200911000140

PATIENT
  Age: 62 Year
  Sex: Female

DRUGS (3)
  1. EFFIENT [Suspect]
     Indication: ACUTE MYOCARDIAL INFARCTION
     Dosage: 60 MG, UNK
     Dates: start: 20091019, end: 20091019
  2. ASPIRIN [Concomitant]
  3. ABCIXIMAB [Concomitant]

REACTIONS (1)
  - CARDIOGENIC SHOCK [None]
